FAERS Safety Report 6435657-7 (Version None)
Quarter: 2009Q4

REPORT INFORMATION
  Report Type: 
  Country: None (occurrence: None)
  Receive Date: 20091111
  Receipt Date: 20091105
  Transmission Date: 20100525
  Serious: Yes (Disabling, Other)
  Sender: FDA-Public Use
  Company Number: HR-ROXANE LABORATORIES, INC.-2009-RO-01139RO

PATIENT
  Age: 55 Year
  Sex: Female

DRUGS (3)
  1. LITHIUM CARBONATE [Suspect]
     Indication: DEPRESSION
  2. DIAZEPAM [Suspect]
     Indication: STIFF-MAN SYNDROME
  3. METHYLPREDNISOLONE 4MG TAB [Concomitant]
     Indication: STIFF-MAN SYNDROME
     Dosage: 64 MG
     Route: 048

REACTIONS (4)
  - DRUG INEFFECTIVE [None]
  - NEUROLOGICAL SYMPTOM [None]
  - SEDATION [None]
  - TREMOR [None]
